FAERS Safety Report 16890236 (Version 1)
Quarter: 2019Q4

REPORT INFORMATION
  Report Type: Spontaneous
  Country: US (occurrence: US)
  Receive Date: 20191007
  Receipt Date: 20191007
  Transmission Date: 20200122
  Serious: No
  Sender: FDA-Public Use
  Company Number: US-BAYER-2019-180798

PATIENT
  Age: 86 Year
  Sex: Female
  Weight: 61.2 kg

DRUGS (1)
  1. MIRALAX [Suspect]
     Active Substance: POLYETHYLENE GLYCOL 3350
     Indication: DIVERTICULITIS
     Dosage: 2-3 TIMES A DAY
     Route: 048
     Dates: start: 20190925

REACTIONS (3)
  - Product use in unapproved indication [None]
  - Constipation [None]
  - Off label use [None]

NARRATIVE: CASE EVENT DATE: 2019
